FAERS Safety Report 9007424 (Version 1)
Quarter: 2013Q1

REPORT INFORMATION
  Report Type: Report from Study
  Country: US (occurrence: US)
  Receive Date: 20130110
  Receipt Date: 20130110
  Transmission Date: 20140127
  Serious: Yes (Hospitalization)
  Sender: FDA-Public Use
  Company Number: US-BAXTER-2013BAX000390

PATIENT
  Age: 63 Year
  Sex: 0

DRUGS (4)
  1. CYCLOPHOSPHAMIDE FOR INJECTION, USP [Suspect]
     Indication: PLASMA CELL MYELOMA
     Route: 065
  2. BORTEZOMIB [Suspect]
     Indication: PLASMA CELL MYELOMA
     Route: 065
  3. DEXAMETHASONE [Suspect]
     Indication: PLASMA CELL MYELOMA
     Route: 065
  4. ZOLEDRONIC ACID [Suspect]
     Indication: PLASMA CELL MYELOMA
     Route: 065

REACTIONS (3)
  - Serratia sepsis [Unknown]
  - Hypotension [Unknown]
  - Dehydration [Unknown]
